FAERS Safety Report 7351925-9 (Version None)
Quarter: 2011Q1

REPORT INFORMATION
  Report Type: 
  Country: None (occurrence: None)
  Receive Date: 20110310
  Receipt Date: 20110310
  Transmission Date: 20110831
  Serious: Yes (Other)
  Sender: FDA-Public Use
  Company Number: None

PATIENT
  Age: 62 Year
  Sex: Female
  Weight: 65.7716 kg

DRUGS (1)
  1. DIPHENOXYLATE HCL W/ ATROPINE SULFATE [Suspect]
     Indication: DIARRHOEA
     Dosage: 2 TABS EVERY 6 HRS.
     Dates: start: 20110124

REACTIONS (2)
  - ABDOMINAL PAIN UPPER [None]
  - CHEST PAIN [None]
